FAERS Safety Report 7139319-2 (Version None)
Quarter: 2010Q4

REPORT INFORMATION
  Report Type: 
  Country: None (occurrence: None)
  Receive Date: 20101206
  Receipt Date: 20101123
  Transmission Date: 20110411
  Serious: Yes (Hospitalization)
  Sender: FDA-Public Use
  Company Number: FR-CELGENEUS-056-C5013-10090173

PATIENT
  Sex: Male
  Weight: 61 kg

DRUGS (8)
  1. CC-5013 [Suspect]
     Indication: MULTIPLE MYELOMA
     Route: 048
     Dates: start: 20091112
  2. CC-5013 [Suspect]
     Route: 048
     Dates: start: 20100819, end: 20100915
  3. CC-5013 [Suspect]
     Route: 048
     Dates: start: 20100928
  4. DEXAMETHASONE [Suspect]
     Indication: MULTIPLE MYELOMA
     Route: 065
     Dates: start: 20091112
  5. DEXAMETHASONE [Suspect]
     Route: 065
     Dates: start: 20100819, end: 20100915
  6. DEXAMETHASONE [Suspect]
     Route: 065
     Dates: start: 20100928
  7. KARDEGIC [Concomitant]
     Indication: THROMBOSIS PROPHYLAXIS
     Route: 048
     Dates: start: 20091112
  8. PROPOFAN [Concomitant]
     Indication: PAIN
     Route: 048
     Dates: start: 20090601

REACTIONS (1)
  - LUNG DISORDER [None]
